FAERS Safety Report 7955561-2 (Version None)
Quarter: 2011Q4

REPORT INFORMATION
  Report Type: 
  Country: None (occurrence: None)
  Receive Date: 20111202
  Receipt Date: 20111128
  Transmission Date: 20120403
  Serious: Yes (Other)
  Sender: FDA-Public Use
  Company Number: US-ASTRAZENECA-2011SE72263

PATIENT
  Age: 73 Year
  Sex: Female
  Weight: 79.4 kg

DRUGS (8)
  1. PAXIL [Concomitant]
  2. INDERAL [Concomitant]
     Indication: CARDIAC DISORDER
  3. CLONIPINE [Concomitant]
     Indication: BIPOLAR DISORDER
  4. PERBENEZINE [Concomitant]
     Dosage: 40-10
  5. NEXIUM [Suspect]
     Indication: BARRETT'S OESOPHAGUS
     Route: 048
  6. THYROID MEDICATION [Concomitant]
     Indication: HYPOTHYROIDISM
  7. ATACAND [Suspect]
     Route: 048
  8. NEXIUM [Suspect]
     Indication: GASTROOESOPHAGEAL REFLUX DISEASE
     Route: 048

REACTIONS (1)
  - LYMPHOEDEMA [None]
